FAERS Safety Report 6248934-X (Version None)
Quarter: 2009Q2

REPORT INFORMATION
  Report Type: 
  Country: None (occurrence: None)
  Receive Date: 20090629
  Receipt Date: 20090624
  Transmission Date: 20091009
  Serious: Yes (Death)
  Sender: FDA-Public Use
  Company Number: PHHY2009BR25502

PATIENT
  Sex: Female

DRUGS (11)
  1. DIOVAN HCT [Suspect]
     Indication: HYPERTENSION
     Dosage: 1 TABLET DAILY
     Route: 048
     Dates: start: 19980101
  2. ANCORON [Concomitant]
  3. NATRILIX [Concomitant]
  4. VINPOCETINE [Concomitant]
  5. FLUIMUCIL [Concomitant]
  6. FERROUS GLYCINE SULFATE [Concomitant]
  7. SIMVASTATIN [Concomitant]
  8. SERTRALINE HYDROCHLORIDE [Concomitant]
  9. AMLO [Concomitant]
  10. CLAUDIC [Concomitant]
  11. LOPIGREE [Concomitant]

REACTIONS (6)
  - BRONCHIAL DISORDER [None]
  - CARDIO-RESPIRATORY ARREST [None]
  - CARDIOPULMONARY FAILURE [None]
  - CHRONIC OBSTRUCTIVE PULMONARY DISEASE [None]
  - HYPERTENSION [None]
  - PNEUMONIA ASPIRATION [None]
